FAERS Safety Report 10949459 (Version 2)
Quarter: 2015Q1

REPORT INFORMATION
  Report Type: Spontaneous
  Country: CH (occurrence: CH)
  Receive Date: 20150324
  Receipt Date: 20150327
  Transmission Date: 20150721
  Serious: Yes (Hospitalization, Other)
  Sender: FDA-Public Use
  Company Number: CH-PFIZER INC-2015100335

PATIENT
  Age: 80 Year
  Sex: Female

DRUGS (9)
  1. BELOC [Concomitant]
     Active Substance: METOPROLOL TARTRATE
  2. VENLAFAXINE HCL [Suspect]
     Active Substance: VENLAFAXINE HYDROCHLORIDE
     Indication: DEPRESSION
     Dosage: 1 DF, SINGLE (TOTAL)
     Route: 065
     Dates: start: 20140620, end: 20140620
  3. ALDACTONE [Suspect]
     Active Substance: SPIRONOLACTONE
     Indication: HYPERTENSION
     Dosage: 25 MG, DAILY
     Route: 048
     Dates: start: 20140107, end: 201406
  4. MARCOUMAR [Concomitant]
     Active Substance: PHENPROCOUMON
  5. SELIPRAN [Concomitant]
     Active Substance: PRAVASTATIN SODIUM
  6. CORDARONE [Suspect]
     Active Substance: AMIODARONE HYDROCHLORIDE
     Indication: ATRIAL TACHYCARDIA
     Dosage: 200 MG, DAILY
     Route: 048
     Dates: start: 20131223, end: 201406
  7. PANTOZOL [Concomitant]
     Active Substance: PANTOPRAZOLE SODIUM
  8. PLAVIX [Concomitant]
     Active Substance: CLOPIDOGREL BISULFATE
  9. TRIATEC [Concomitant]
     Active Substance: RAMIPRIL

REACTIONS (5)
  - Hyponatraemia [Recovered/Resolved]
  - Fall [Recovered/Resolved]
  - Bradycardia [Unknown]
  - Inappropriate antidiuretic hormone secretion [Recovered/Resolved]
  - Dizziness [Unknown]

NARRATIVE: CASE EVENT DATE: 20131223
